FAERS Safety Report 25167986 (Version 4)
Quarter: 2025Q2

REPORT INFORMATION
  Report Type: Spontaneous
  Country: US (occurrence: US)
  Receive Date: 20250407
  Receipt Date: 20250613
  Transmission Date: 20250717
  Serious: No
  Sender: ALEXION PHARMACEUTICALS
  Company Number: US-AstraZeneca-CH-00839351AP

PATIENT

DRUGS (1)
  1. AIRSUPRA [Suspect]
     Active Substance: ALBUTEROL SULFATE\BUDESONIDE
     Indication: Chronic obstructive pulmonary disease
     Route: 065

REACTIONS (5)
  - Hypersensitivity [Unknown]
  - Eye allergy [Unknown]
  - Eye disorder [Unknown]
  - Device use issue [Unknown]
  - Device malfunction [Unknown]
